FAERS Safety Report 14171584 (Version 1)
Quarter: 2017Q4

REPORT INFORMATION
  Report Type: Spontaneous
  Country: CA (occurrence: CA)
  Receive Date: 20171108
  Receipt Date: 20171108
  Transmission Date: 20180321
  Serious: Yes (Disabling)
  Sender: FDA-Public Use
  Company Number: CA-SUNOVION-2017SUN004808

PATIENT
  Age: 44 Year
  Sex: Male

DRUGS (1)
  1. LATUDA [Suspect]
     Active Substance: LURASIDONE HYDROCHLORIDE
     Indication: POST-TRAUMATIC STRESS DISORDER
     Dosage: UNK UNK, QD
     Route: 048

REACTIONS (2)
  - Myalgia [Recovered/Resolved]
  - Product use in unapproved indication [Unknown]
